FAERS Safety Report 10186583 (Version 2)
Quarter: 2014Q2

REPORT INFORMATION
  Report Type: Spontaneous
  Country: CA (occurrence: CA)
  Receive Date: 20140521
  Receipt Date: 20140603
  Transmission Date: 20141212
  Serious: Yes (Other)
  Sender: FDA-Public Use
  Company Number: CA-GE HEALTHCARE MEDICAL DIAGNOSTICS-OMPQ-PR-1405S-0475

PATIENT
  Age: 86 Year
  Sex: Female

DRUGS (3)
  1. OMNIPAQUE [Suspect]
     Indication: ABDOMINAL PAIN
     Route: 042
     Dates: start: 20140423, end: 20140423
  2. OMNIPAQUE [Suspect]
     Indication: ABDOMINAL DISTENSION
  3. OMNIPAQUE [Suspect]
     Indication: DIAGNOSTIC PROCEDURE

REACTIONS (4)
  - Depressed level of consciousness [Recovered/Resolved]
  - Muscle twitching [Recovered/Resolved]
  - Vision blurred [Recovered/Resolved]
  - Dysarthria [Recovered/Resolved]
